FAERS Safety Report 4978435-8 (Version None)
Quarter: 2006Q2

REPORT INFORMATION
  Report Type: 
  Country: None (occurrence: None)
  Receive Date: 20060420
  Receipt Date: 20060323
  Transmission Date: 20061013
  Serious: Yes (Hospitalization)
  Sender: FDA-Public Use
  Company Number: US-BOEHRINGER INGELHEIM PHARMACEUTICALS, INC.-2006-BP-03333BP

PATIENT
  Sex: Male

DRUGS (9)
  1. COMBIVENT [Suspect]
     Indication: ASTHMA
     Route: 055
  2. NAPROSYN [Concomitant]
     Indication: GOUT
  3. PROBENECID [Concomitant]
     Indication: GOUT
  4. NORVASC [Concomitant]
  5. LOVASTATIN [Concomitant]
     Indication: BLOOD CHOLESTEROL
  6. DIOVAN [Concomitant]
     Indication: CARDIAC DISORDER
  7. HYDROCHLOROTHIAZIDE [Concomitant]
     Indication: DIURETIC THERAPY
  8. FLOVENT [Concomitant]
     Indication: ASTHMA
  9. SEREVENT [Concomitant]
     Indication: ASTHMA

REACTIONS (4)
  - CANDIDIASIS [None]
  - PNEUMONIA [None]
  - PNEUMONIA VIRAL [None]
  - STAPHYLOCOCCAL INFECTION [None]
